FAERS Safety Report 25930122 (Version 1)
Quarter: 2025Q4

REPORT INFORMATION
  Report Type: Spontaneous
  Country: US (occurrence: None)
  Receive Date: 20251015
  Receipt Date: 20251015
  Transmission Date: 20260118
  Serious: Yes (Disabling)
  Sender: FDA-CTU
  Company Number: None

PATIENT
  Age: 79 Year
  Sex: Female
  Weight: 44.37 kg

DRUGS (13)
  1. CREXONT [Suspect]
     Active Substance: CARBIDOPA\LEVODOPA
     Indication: Parkinson^s disease
     Dosage: 120 CAPSULES EVERY 6 HOURS ORAL
     Route: 048
  2. RASAGILINE [Suspect]
     Active Substance: RASAGILINE
  3. ONGENTYS [Suspect]
     Active Substance: OPICAPONE
  4. TOPROL XL [Suspect]
     Active Substance: METOPROLOL SUCCINATE
  5. MINERALS\VITAMINS [Concomitant]
     Active Substance: MINERALS\VITAMINS
  6. RASAGILINE [Concomitant]
     Active Substance: RASAGILINE
  7. ONGENTYS [Concomitant]
     Active Substance: OPICAPONE
  8. FOSAMAX [Concomitant]
     Active Substance: ALENDRONATE SODIUM
  9. TOPROL XL [Concomitant]
     Active Substance: METOPROLOL SUCCINATE
  10. HYDRALAZINE [Concomitant]
     Active Substance: HYDRALAZINE HYDROCHLORIDE
  11. Dhivy (as needed) [Concomitant]
  12. COLACE [Concomitant]
     Active Substance: DOCUSATE SODIUM
  13. TYLENOL [Concomitant]
     Active Substance: ACETAMINOPHEN

REACTIONS (6)
  - Tachycardia [None]
  - Hypertension [None]
  - Abnormal loss of weight [None]
  - Drug interaction [None]
  - Cachexia [None]
  - Cardiac disorder [None]

NARRATIVE: CASE EVENT DATE: 20250201
